FAERS Safety Report 11268240 (Version 1)
Quarter: 2015Q3

REPORT INFORMATION
  Report Type: Spontaneous
  Country: NL (occurrence: NL)
  Receive Date: 20150714
  Receipt Date: 20150714
  Transmission Date: 20151125
  Serious: Yes (Death, Other)
  Sender: FDA-Public Use
  Company Number: NL-009507513-1507NLD004387

PATIENT
  Age: 47 Year
  Sex: Female

DRUGS (2)
  1. POSACONAZOLE [Suspect]
     Active Substance: POSACONAZOLE
     Indication: ASPERGILLUS INFECTION
  2. POSACONAZOLE [Suspect]
     Active Substance: POSACONAZOLE
     Indication: INFECTIOUS PLEURAL EFFUSION
     Route: 048

REACTIONS (3)
  - Respiratory failure [Fatal]
  - Disease progression [Unknown]
  - Drug ineffective [Unknown]
